FAERS Safety Report 21843798 (Version 1)
Quarter: 2023Q1

REPORT INFORMATION
  Report Type: Spontaneous
  Country: US (occurrence: US)
  Receive Date: 20230110
  Receipt Date: 20230110
  Transmission Date: 20230417
  Serious: Yes (Hospitalization)
  Sender: FDA-Public Use
  Company Number: US-RIGEL PHARMACEUTICALS, INC.-2023FOS000006

PATIENT
  Sex: Female

DRUGS (1)
  1. TAVALISSE [Suspect]
     Active Substance: FOSTAMATINIB
     Indication: Immune thrombocytopenia
     Dosage: 150 MG, BID
     Route: 048
     Dates: start: 20220916

REACTIONS (6)
  - Impaired gastric emptying [Unknown]
  - Malaise [Unknown]
  - Vomiting [Unknown]
  - Platelet count increased [Unknown]
  - Blood pressure increased [Unknown]
  - Product dose omission issue [Unknown]
